FAERS Safety Report 7602923-9 (Version None)
Quarter: 2011Q3

REPORT INFORMATION
  Report Type: 
  Country: None (occurrence: None)
  Receive Date: 20110712
  Receipt Date: 20110627
  Transmission Date: 20111222
  Serious: Yes (Other)
  Sender: FDA-Public Use
  Company Number: SE-ELI_LILLY_AND_COMPANY-US_010360854

PATIENT
  Age: 73 Year
  Sex: Female

DRUGS (2)
  1. PERPHENAZINE [Concomitant]
     Indication: SCHIZOPHRENIA
     Dosage: 16 MG, UNKNOWN
  2. MIRTAZAPINE [Suspect]
     Indication: SCHIZOPHRENIA
     Dosage: 10 MG, DAILY (1/D)

REACTIONS (5)
  - HYPOTHERMIA [None]
  - SOMNOLENCE [None]
  - HYPOTENSION [None]
  - ELECTROCARDIOGRAM QT PROLONGED [None]
  - ATRIOVENTRICULAR BLOCK FIRST DEGREE [None]
